FAERS Safety Report 7038528-0 (Version None)
Quarter: 2010Q4

REPORT INFORMATION
  Report Type: 
  Country: None (occurrence: None)
  Receive Date: 20101011
  Receipt Date: 20100513
  Transmission Date: 20110411
  Serious: No
  Sender: FDA-Public Use
  Company Number: US-PFIZER INC-2010061146

PATIENT
  Sex: Female
  Weight: 57.596 kg

DRUGS (3)
  1. NEURONTIN [Suspect]
     Indication: SCIATICA
     Dosage: 100 MG, 4X/DAY
     Route: 048
     Dates: start: 20100310
  2. NEURONTIN [Suspect]
     Dosage: 400 MG, 3X/DAY
     Dates: start: 20100101
  3. QUINAPRIL [Concomitant]
     Indication: HYPERTENSION
     Dosage: UNK

REACTIONS (2)
  - DRUG INEFFECTIVE [None]
  - PAIN [None]
